FAERS Safety Report 8263470-7 (Version None)
Quarter: 2012Q2

REPORT INFORMATION
  Report Type: 
  Country: None (occurrence: None)
  Receive Date: 20120405
  Receipt Date: 20120328
  Transmission Date: 20120825
  Serious: Yes (Other)
  Sender: FDA-Public Use
  Company Number: JP-VALEANT-2012VX001526

PATIENT
  Age: 70 Year
  Sex: Male

DRUGS (5)
  1. DOCETAXEL [Suspect]
     Route: 065
  2. CISPLATIN [Suspect]
     Route: 065
  3. FLUOROURACIL [Suspect]
     Route: 065
  4. CISPLATIN [Suspect]
     Route: 065
  5. FLUOROURACIL [Suspect]
     Route: 065

REACTIONS (3)
  - STOMATITIS [None]
  - RENAL IMPAIRMENT [None]
  - LEUKOPENIA [None]
